FAERS Safety Report 25355188 (Version 1)
Quarter: 2025Q2

REPORT INFORMATION
  Report Type: Report from Study
  Country: GB (occurrence: GB)
  Receive Date: 20250524
  Receipt Date: 20250524
  Transmission Date: 20250717
  Serious: Yes (Death)
  Sender: ABBVIE
  Company Number: GB-ABBVIE-6298849

PATIENT
  Sex: Male

DRUGS (1)
  1. HUMIRA [Suspect]
     Active Substance: ADALIMUMAB
     Indication: Psoriatic arthropathy
     Dosage: 40MG/0.4ML, 2 PRE-FILLED DISPOSABLE INJECTION.
     Route: 058

REACTIONS (2)
  - Death [Fatal]
  - Product lot number issue [Unknown]
